FAERS Safety Report 16426294 (Version 1)
Quarter: 2019Q2

REPORT INFORMATION
  Report Type: Spontaneous
  Country: GB (occurrence: GB)
  Receive Date: 20190613
  Receipt Date: 20190613
  Transmission Date: 20190711
  Serious: Yes (Other)
  Sender: FDA-Public Use
  Company Number: GB-MYLANLABS-2019M1054295

PATIENT
  Age: 64 Year
  Sex: Female
  Weight: 96 kg

DRUGS (13)
  1. DOXYCYCLINE. [Suspect]
     Active Substance: DOXYCYCLINE
     Indication: PRODUCT USED FOR UNKNOWN INDICATION
     Dosage: 100 MILLIGRAM TWO NOW THEN ONE DAILY
     Dates: start: 20181127
  2. WARFARIN SODIUM. [Concomitant]
     Active Substance: WARFARIN SODIUM
     Dosage: TAKE AS INSTRUCTED BY THE WARFARIN CLINIC
     Dates: start: 20170509
  3. PARACETAMOL [Concomitant]
     Active Substance: ACETAMINOPHEN
     Dosage: UNK UNK, PRN TWO TO BE TAKEN FOUR TIMES DAILY IF REQUIRED
     Dates: start: 20170509
  4. METHOTREXATE. [Concomitant]
     Active Substance: METHOTREXATE
     Dosage: 10 MILLIGRAM, QW
     Dates: start: 20170928
  5. NASEPTIN [Concomitant]
     Active Substance: CHLORHEXIDINE HYDROCHLORIDE\NEOMYCIN SULFATE
     Dosage: 8 DOSAGE FORM, QD APPLY TO BOTH NOSTRILS FOUR TIMES A DAY FOR 10 ...
     Route: 045
     Dates: start: 20180920, end: 20181018
  6. RANITIDINE. [Concomitant]
     Active Substance: RANITIDINE
     Indication: DYSPEPSIA
     Dosage: 1 DOSAGE FORM AT NIGHT
     Dates: start: 20170509
  7. RAMIPRIL. [Concomitant]
     Active Substance: RAMIPRIL
     Dosage: 1 DOSAGE FORM, QD
     Dates: start: 20170509
  8. FOLIC ACID. [Concomitant]
     Active Substance: FOLIC ACID
     Dosage: DAILY EXCEPT DAY OF METHOTREXATE.
     Dates: start: 20170704
  9. HYLO TEAR [Concomitant]
     Dosage: 4 DOSAGE FORM, QD APPLY.
     Dates: start: 20180514
  10. LEVOTHYROXINE. [Concomitant]
     Active Substance: LEVOTHYROXINE
     Dosage: 125 MICROGRAM, QD
     Dates: start: 20170509
  11. CODEINE PHOSPHATE [Concomitant]
     Active Substance: CODEINE PHOSPHATE
     Dosage: TAKE ONE OR TWO  4 TIMES/DAY ALONG WITH PARACET...
     Dates: start: 20170509
  12. BISOPROLOL [Concomitant]
     Active Substance: BISOPROLOL
     Dosage: 1 DOSAGE FORM, QD
     Dates: start: 20170509
  13. SIMVASTATIN. [Concomitant]
     Active Substance: SIMVASTATIN
     Indication: HYPERCHOLESTEROLAEMIA
     Dosage: 1 DOSAGE FORM AT NIGHT
     Dates: start: 20171204

REACTIONS (2)
  - Peripheral swelling [Recovered/Resolved]
  - Swelling face [Recovered/Resolved]

NARRATIVE: CASE EVENT DATE: 20181127
